FAERS Safety Report 14109798 (Version 1)
Quarter: 2017Q4

REPORT INFORMATION
  Report Type: Spontaneous
  Country: US (occurrence: US)
  Receive Date: 20171020
  Receipt Date: 20171020
  Transmission Date: 20180321
  Serious: Yes (Other)
  Sender: FDA-Public Use
  Company Number: US-TEVA-739234USA

PATIENT
  Sex: Female
  Weight: 53 kg

DRUGS (1)
  1. ESTRADIOL. [Suspect]
     Active Substance: ESTRADIOL
     Indication: HORMONE REPLACEMENT THERAPY
     Route: 065

REACTIONS (5)
  - Dizziness [Unknown]
  - Nervousness [Unknown]
  - Feeling abnormal [Unknown]
  - Uterine cancer [Unknown]
  - Feeling jittery [Unknown]
